FAERS Safety Report 9528977 (Version 1)
Quarter: 2013Q3

REPORT INFORMATION
  Report Type: Spontaneous
  Country: US (occurrence: US)
  Receive Date: 20130917
  Receipt Date: 20130917
  Transmission Date: 20140515
  Serious: No
  Sender: FDA-Public Use
  Company Number: US-BANPHARM-20131426

PATIENT
  Age: 71 Year
  Sex: Male
  Weight: 92.99 kg

DRUGS (5)
  1. ZYRTEC LIQUID GELS 10 MG [Suspect]
     Indication: PRURITUS
     Dosage: ONCE PER 3 DAYS,
     Route: 048
  2. DIOVAN HCT 160 MG/12.5 [Concomitant]
     Indication: BLOOD PRESSURE
     Dosage: QD,
     Route: 065
  3. TOPROL XL 50 MG [Concomitant]
     Indication: BLOOD PRESSURE
     Dosage: QD,
     Route: 065
  4. LIPITOR 10 MG [Concomitant]
     Indication: BLOOD CHOLESTEROL
     Dosage: QD,
     Route: 065
  5. VITAMIN D [Concomitant]
     Indication: VITAMIN D DEFICIENCY
     Dosage: QD,

REACTIONS (1)
  - Drug ineffective [Recovered/Resolved]
